FAERS Safety Report 6208705-7 (Version None)
Quarter: 2009Q2

REPORT INFORMATION
  Report Type: 
  Country: None (occurrence: None)
  Receive Date: 20090522
  Receipt Date: 20090130
  Transmission Date: 20091009
  Serious: No
  Sender: FDA-Public Use
  Company Number: 8042304

PATIENT
  Age: 25 Year
  Sex: Female
  Weight: 63.6 kg

DRUGS (3)
  1. CIMZIA [Suspect]
     Indication: CROHN'S DISEASE
     Dosage: 400 MG SC
     Route: 058
     Dates: start: 20090109
  2. APRI BIRTH CONTROL PILLS [Concomitant]
  3. DORYX [Concomitant]

REACTIONS (2)
  - ARTHRALGIA [None]
  - NIGHT SWEATS [None]
